FAERS Safety Report 4602290-9 (Version None)
Quarter: 2005Q1

REPORT INFORMATION
  Report Type: 
  Country: None (occurrence: None)
  Receive Date: 20050201
  Receipt Date: 20040415
  Transmission Date: 20050727
  Serious: Yes (Other)
  Sender: FDA-Public Use
  Company Number: 200417613BWH

PATIENT
  Age: 42 Year
  Sex: Male
  Weight: 101.6057 kg

DRUGS (2)
  1. AVELOX [Suspect]
     Indication: SINUSITIS
     Dosage: 400 MG, QD, ORAL
     Route: 048
     Dates: start: 20040407, end: 20040408
  2. ALLEGRA-D/OLD FORM/ [Concomitant]

REACTIONS (9)
  - ABDOMINAL PAIN [None]
  - BEDRIDDEN [None]
  - DEHYDRATION [None]
  - DIARRHOEA [None]
  - EATING DISORDER [None]
  - FAECES DISCOLOURED [None]
  - FLATULENCE [None]
  - NAUSEA [None]
  - WEIGHT DECREASED [None]
